FAERS Safety Report 7628233-1 (Version None)
Quarter: 2011Q3

REPORT INFORMATION
  Report Type: 
  Country: None (occurrence: None)
  Receive Date: 20110714
  Receipt Date: 20110706
  Transmission Date: 20111222
  Serious: Yes (Hospitalization)
  Sender: FDA-Public Use
  Company Number: MPS1-1000367

PATIENT
  Age: 16 Month
  Sex: Male
  Weight: 10.6 kg

DRUGS (13)
  1. ALDURAZYME [Suspect]
     Indication: MUCOPOLYSACCHARIDOSIS I
     Dosage: 5.8 MG, INTRAVENOUS
     Route: 042
     Dates: start: 20100610, end: 20110301
  2. FLUCONAZOLE [Concomitant]
  3. LABETALOL HCL [Concomitant]
  4. MAGNESIUM (MAGNESIUM) [Concomitant]
  5. ACYCLOVIR [Concomitant]
  6. AMLODIPINE [Concomitant]
  7. BUSULFAN [Concomitant]
  8. CYCLOSPORINE [Concomitant]
  9. ANTI-THYMOCYTE GLOBULIN NOS [Concomitant]
  10. LORAZEPAM [Concomitant]
  11. PENTAMIDINE (PENTAMIDINE) [Concomitant]
  12. FLUDARABINE PHOSPHATE [Concomitant]
  13. MYCOPHENOLATE MOFETIL [Concomitant]

REACTIONS (10)
  - IRRITABILITY [None]
  - TACHYCARDIA [None]
  - CATHETER SITE INFECTION [None]
  - PALLOR [None]
  - INFUSION RELATED REACTION [None]
  - STAPHYLOCOCCAL INFECTION [None]
  - DEVICE OCCLUSION [None]
  - FEELING JITTERY [None]
  - PYREXIA [None]
  - BACTERIAL TEST POSITIVE [None]
